FAERS Safety Report 9131786 (Version 1)
Quarter: 2013Q1

REPORT INFORMATION
  Report Type: Spontaneous
  Country: US (occurrence: US)
  Receive Date: 20130301
  Receipt Date: 20130301
  Transmission Date: 20140127
  Serious: No
  Sender: FDA-Public Use
  Company Number: US-MYLANLABS-2012S1014365

PATIENT
  Age: 37 Year
  Sex: Female

DRUGS (7)
  1. AMNESTEEM CAPSULES [Suspect]
     Indication: ACNE CYSTIC
     Route: 048
     Dates: start: 201205, end: 201206
  2. AMNESTEEM CAPSULES [Suspect]
     Indication: ACNE
     Route: 048
     Dates: start: 201205, end: 201206
  3. AMNESTEEM CAPSULES [Suspect]
     Indication: ACNE CYSTIC
     Route: 048
     Dates: start: 20120601
  4. AMNESTEEM CAPSULES [Suspect]
     Indication: ACNE
     Route: 048
     Dates: start: 20120601
  5. SPIRONOLACTONE [Concomitant]
  6. METFORMIN [Concomitant]
  7. BUPROPION HYDROCHLORIDE EXTENDED-RELEASE TABLETS [Concomitant]

REACTIONS (2)
  - Rash [Recovered/Resolved]
  - Ocular hyperaemia [Recovered/Resolved]
